FAERS Safety Report 4781511-6 (Version None)
Quarter: 2005Q3

REPORT INFORMATION
  Report Type: 
  Country: None (occurrence: None)
  Receive Date: 20050920
  Receipt Date: 20050830
  Transmission Date: 20060218
  Serious: No
  Sender: FDA-Public Use
  Company Number: USA0509107061

PATIENT
  Age: 30 Year
  Sex: Female

DRUGS (5)
  1. CYMBALTA [Suspect]
     Dosage: 60 MG
     Dates: start: 20050713
  2. OXYCODONE HCL [Concomitant]
  3. XANAX [Concomitant]
  4. ZANAFLEX [Concomitant]
  5. LIDODERM (LIDOCAINE) [Concomitant]

REACTIONS (5)
  - CHILLS [None]
  - CHROMATURIA [None]
  - COUGH [None]
  - PHARYNGEAL OEDEMA [None]
  - PYREXIA [None]
